FAERS Safety Report 15744894 (Version 1)
Quarter: 2018Q4

REPORT INFORMATION
  Report Type: Spontaneous
  Country: GB (occurrence: GB)
  Receive Date: 20181220
  Receipt Date: 20181220
  Transmission Date: 20190205
  Serious: Yes (Other)
  Sender: FDA-Public Use
  Company Number: GB-PFIZER INC-2008003856

PATIENT
  Sex: Female

DRUGS (2)
  1. DAUNORUBICIN [Concomitant]
     Active Substance: DAUNORUBICIN
  2. CYTARABINE. [Suspect]
     Active Substance: CYTARABINE
     Indication: ACUTE MYELOID LEUKAEMIA
     Dosage: EVERY DAY

REACTIONS (1)
  - Cardiac arrest [Unknown]
